FAERS Safety Report 18404292 (Version 1)
Quarter: 2020Q4

REPORT INFORMATION
  Report Type: Spontaneous
  Country: HU (occurrence: HU)
  Receive Date: 20201020
  Receipt Date: 20201020
  Transmission Date: 20210114
  Serious: Yes (Other)
  Sender: FDA-Public Use
  Company Number: HU-TEVA-2020-HU-1840651

PATIENT
  Age: 44 Year
  Sex: Female

DRUGS (6)
  1. DEXA-RATIOPHARM 4 MG/ML INJECTION [Suspect]
     Active Substance: DEXAMETHASONE SODIUM PHOSPHATE
     Indication: MENIERE^S DISEASE
     Dosage: 4 MILLIGRAM/MILLILITERS DAILY; INTRATYMPANIC ROUTE
     Dates: start: 201508, end: 201508
  2. DEXA-RATIOPHARM 4 MG/ML INJECTION [Suspect]
     Active Substance: DEXAMETHASONE SODIUM PHOSPHATE
     Dosage: 4 MILLIGRAM/MILLILITERS DAILY; INTRATYMPANIC ROUTE
     Dates: start: 201605, end: 201605
  3. LIDOCAINE. [Concomitant]
     Active Substance: LIDOCAINE
     Route: 065
     Dates: start: 201605, end: 201605
  4. NOOTROPIL [Concomitant]
     Active Substance: PIRACETAM
     Route: 042
     Dates: start: 201605, end: 201605
  5. NOOTROPIL [Concomitant]
     Active Substance: PIRACETAM
     Indication: MENIERE^S DISEASE
     Route: 042
     Dates: start: 201508, end: 201508
  6. LIDOCAINE. [Concomitant]
     Active Substance: LIDOCAINE
     Indication: ANAESTHESIA
     Route: 065
     Dates: start: 201508, end: 201508

REACTIONS (1)
  - Cholesteatoma [Recovered/Resolved]

NARRATIVE: CASE EVENT DATE: 201707
